FAERS Safety Report 4389949-6 (Version None)
Quarter: 2004Q2

REPORT INFORMATION
  Report Type: 
  Country: None (occurrence: None)
  Receive Date: 20040628
  Receipt Date: 20040615
  Transmission Date: 20050107
  Serious: Yes (Death)
  Sender: FDA-Public Use
  Company Number: USA-2004-0012420

PATIENT
  Age: 51 Year
  Sex: Male

DRUGS (6)
  1. OXYCONTIN [Suspect]
     Indication: PAIN
     Dosage: 60 MG , BID
     Dates: start: 20030901
  2. VITAMIN D [Concomitant]
  3. NOS) [Concomitant]
  4. LASIX (FUROSEMIDE0 [Concomitant]
  5. CELEBREX [Concomitant]
  6. OXYIR(OXYCODONE HYDROCHLORIDE) [Concomitant]

REACTIONS (1)
  - DEATH [None]
